FAERS Safety Report 11640313 (Version 1)
Quarter: 2015Q4

REPORT INFORMATION
  Report Type: Spontaneous
  Country: US (occurrence: US)
  Receive Date: 20151019
  Receipt Date: 20151019
  Transmission Date: 20160304
  Serious: Yes (Other)
  Sender: FDA-Public Use
  Company Number: US-GLAXOSMITHKLINE-US2015147383

PATIENT
  Sex: Female

DRUGS (1)
  1. SORIATANE [Suspect]
     Active Substance: ACITRETIN
     Indication: SKIN CANCER
     Dosage: UNK

REACTIONS (4)
  - Alopecia [Unknown]
  - Off label use [Unknown]
  - Cerebral haemorrhage [Unknown]
  - Anticoagulation drug level abnormal [Unknown]
